FAERS Safety Report 23125273 (Version 4)
Quarter: 2025Q2

REPORT INFORMATION
  Report Type: Spontaneous
  Country: ES (occurrence: ES)
  Receive Date: 20231030
  Receipt Date: 20250514
  Transmission Date: 20250717
  Serious: Yes (Other)
  Sender: RANBAXY
  Company Number: ES-SUN PHARMACEUTICAL INDUSTRIES LTD-2023R1-415078

PATIENT
  Age: 6 Year
  Sex: Female

DRUGS (1)
  1. VALPROIC ACID [Suspect]
     Active Substance: VALPROIC ACID
     Indication: Partial seizures
     Dosage: 50 MILLIGRAM/KILOGRAM, DAILY
     Route: 065

REACTIONS (2)
  - Cerebral atrophy [Unknown]
  - Cerebellar atrophy [Unknown]
